FAERS Safety Report 5106691-4 (Version None)
Quarter: 2006Q3

REPORT INFORMATION
  Report Type: 
  Country: None (occurrence: None)
  Receive Date: 20060918
  Receipt Date: 20060907
  Transmission Date: 20061208
  Serious: Yes (Death, Other)
  Sender: FDA-Public Use
  Company Number: US-JNJFOC-20060704337

PATIENT
  Sex: Female

DRUGS (7)
  1. REMICADE [Suspect]
     Indication: RHEUMATOID ARTHRITIS
     Route: 042
  2. CELEBREX [Concomitant]
  3. METHOTREXATE [Concomitant]
  4. FOSAMAX [Concomitant]
  5. EVISTA [Concomitant]
  6. OSCAL [Concomitant]
  7. FOLIC ACID [Concomitant]

REACTIONS (7)
  - CARDIAC FAILURE CONGESTIVE [None]
  - DEATH [None]
  - HEART DISEASE CONGENITAL [None]
  - MITRAL VALVE INCOMPETENCE [None]
  - NON-HODGKIN'S LYMPHOMA [None]
  - RENAL FAILURE ACUTE [None]
  - SEPSIS [None]
